FAERS Safety Report 8416998-0 (Version None)
Quarter: 2012Q2

REPORT INFORMATION
  Report Type: 
  Country: None (occurrence: None)
  Receive Date: 20120606
  Receipt Date: 20120531
  Transmission Date: 20120825
  Serious: Yes (Other)
  Sender: FDA-Public Use
  Company Number: AU-PURDUE-USA-2012-0087841

PATIENT
  Sex: Female

DRUGS (5)
  1. OXYCODONE HCL [Suspect]
     Indication: PRODUCT USED FOR UNKNOWN INDICATION
  2. ACETAMINOPHEN [Concomitant]
     Indication: PRODUCT USED FOR UNKNOWN INDICATION
  3. TRAMADOL HCL [Suspect]
     Indication: PROCEDURAL PAIN
     Dosage: 100 MG, 2 TIMES
     Dates: start: 20120330
  4. WARFARIN SODIUM [Concomitant]
     Indication: PRODUCT USED FOR UNKNOWN INDICATION
  5. EFFEXOR XR [Concomitant]
     Dosage: UNK

REACTIONS (5)
  - OXYGEN SATURATION DECREASED [None]
  - MIOSIS [None]
  - PERIPHERAL CIRCULATORY FAILURE [None]
  - RESPIRATORY RATE DECREASED [None]
  - SOMNOLENCE [None]
